FAERS Safety Report 12492455 (Version 6)
Quarter: 2016Q3

REPORT INFORMATION
  Report Type: Spontaneous
  Country: US (occurrence: US)
  Receive Date: 20160623
  Receipt Date: 20160707
  Transmission Date: 20161109
  Serious: Yes (Hospitalization, Other)
  Sender: FDA-Public Use
  Company Number: PHHY2016US084447

PATIENT
  Age: 53 Year
  Sex: Male

DRUGS (11)
  1. LAMICTAL [Interacting]
     Active Substance: LAMOTRIGINE
     Dosage: 300 MG, QD
     Route: 065
  2. TYLENOL PM [Suspect]
     Active Substance: ACETAMINOPHEN\DIPHENHYDRAMINE
     Indication: PRODUCT USED FOR UNKNOWN INDICATION
     Dosage: UNK
     Route: 065
  3. KLONOPIN [Concomitant]
     Active Substance: CLONAZEPAM
     Indication: PRODUCT USED FOR UNKNOWN INDICATION
     Route: 065
  4. VOLTAREN [Suspect]
     Active Substance: DICLOFENAC SODIUM
     Indication: PRODUCT USED FOR UNKNOWN INDICATION
     Dosage: UNK
     Route: 065
  5. LAMICTAL [Interacting]
     Active Substance: LAMOTRIGINE
     Indication: SEIZURE
     Dosage: 25 MG, UNK
     Route: 065
     Dates: start: 2014
  6. LAMICTAL [Interacting]
     Active Substance: LAMOTRIGINE
     Dosage: 100 MG AND 25 MG TABLETS
     Route: 065
  7. NAPROXEN. [Suspect]
     Active Substance: NAPROXEN
     Indication: PRODUCT USED FOR UNKNOWN INDICATION
     Dosage: UNK
     Route: 065
  8. LAMICTAL [Interacting]
     Active Substance: LAMOTRIGINE
     Indication: TEMPORAL LOBE EPILEPSY
     Dosage: 500 MG, BID
     Route: 048
     Dates: start: 199604
  9. LAMICTAL [Interacting]
     Active Substance: LAMOTRIGINE
     Dosage: 100 MG, UNK
     Route: 065
  10. LAMICTAL [Interacting]
     Active Substance: LAMOTRIGINE
     Dosage: 550 MG, QD
     Route: 065
  11. TYLENOL [Interacting]
     Active Substance: ACETAMINOPHEN
     Indication: SLEEP DISORDER
     Dosage: 1000 MG, PRN
     Route: 048
     Dates: start: 200408

REACTIONS (22)
  - Shoulder operation [Unknown]
  - Fall [Recovered/Resolved]
  - Upper limb fracture [Recovered/Resolved]
  - Surgery [Unknown]
  - Divorced [Unknown]
  - Drug hypersensitivity [Unknown]
  - Drug ineffective [Recovered/Resolved]
  - Brain oedema [Unknown]
  - Spinal fusion surgery [Unknown]
  - Seizure [Unknown]
  - Generalised tonic-clonic seizure [Unknown]
  - Fatigue [Unknown]
  - Brain operation [Unknown]
  - Appendicectomy [Unknown]
  - Renal stone removal [Unknown]
  - Insomnia [Recovered/Resolved]
  - Peripheral nerve lesion [Unknown]
  - Drug interaction [Recovered/Resolved]
  - Spinal operation [Unknown]
  - Cerebral lobotomy [Recovered/Resolved]
  - Carpal tunnel syndrome [Unknown]
  - Hernia repair [Unknown]

NARRATIVE: CASE EVENT DATE: 200408
